FAERS Safety Report 12488671 (Version 1)
Quarter: 2016Q2

REPORT INFORMATION
  Report Type: Spontaneous
  Country: IT (occurrence: IT)
  Receive Date: 20160622
  Receipt Date: 20160622
  Transmission Date: 20160815
  Serious: Yes (Other)
  Sender: FDA-Public Use
  Company Number: IT-ACTAVIS-2016-12956

PATIENT
  Age: 9 Year
  Sex: Female

DRUGS (1)
  1. CARBAMAZEPINE (UNKNOWN) [Suspect]
     Active Substance: CARBAMAZEPINE
     Indication: EPILEPSY
     Dosage: 20 MG/KG, BID
     Route: 065

REACTIONS (1)
  - Thrombocytopenic purpura [Recovered/Resolved]
